FAERS Safety Report 15355311 (Version 1)
Quarter: 2018Q3

REPORT INFORMATION
  Report Type: Spontaneous
  Country: US (occurrence: US)
  Receive Date: 20180830
  Receipt Date: 20180830
  Transmission Date: 20181010
  Serious: Yes (Other)
  Sender: FDA-Public Use
  Company Number: None

PATIENT
  Age: 42 Year
  Sex: Female
  Weight: 54 kg

DRUGS (4)
  1. AIMOVIG [Suspect]
     Active Substance: ERENUMAB-AOOE
     Indication: MIGRAINE
     Dosage: ?          QUANTITY:1 DF DOSAGE FORM;OTHER FREQUENCY:MONTHLY;?
     Route: 030
     Dates: start: 20180820, end: 20180821
  2. ZONISOMIDE [Concomitant]
  3. PAIN MEDS FOR THIS EVENT [Concomitant]
  4. SPIRONOLACTONE. [Concomitant]
     Active Substance: SPIRONOLACTONE

REACTIONS (2)
  - Neck pain [None]
  - Headache [None]

NARRATIVE: CASE EVENT DATE: 20180820
